FAERS Safety Report 18560786 (Version 3)
Quarter: 2021Q1

REPORT INFORMATION
  Report Type: Report from Study
  Country: BE (occurrence: BE)
  Receive Date: 20201130
  Receipt Date: 20210107
  Transmission Date: 20210419
  Serious: Yes (Other)
  Sender: FDA-Public Use
  Company Number: NVSC2020BE311743

PATIENT
  Age: 66 Year
  Sex: Female
  Weight: 57 kg

DRUGS (2)
  1. BYL719 [Suspect]
     Active Substance: ALPELISIB
     Dosage: 250 MG, QD (5X50MG (DOSE LEVEL ?1))
     Route: 048
     Dates: end: 20201216
  2. BYL719 [Suspect]
     Active Substance: ALPELISIB
     Indication: BREAST CANCER METASTATIC
     Dosage: 300 MG, QD
     Route: 048
     Dates: start: 20201021

REACTIONS (4)
  - Malignant neoplasm progression [Unknown]
  - Renal impairment [Not Recovered/Not Resolved]
  - Product use complaint [Unknown]
  - Breast cancer metastatic [Unknown]

NARRATIVE: CASE EVENT DATE: 20201103
